FAERS Safety Report 22129655 (Version 1)
Quarter: 2023Q1

REPORT INFORMATION
  Report Type: Other
  Country: CN (occurrence: CN)
  Receive Date: 20230323
  Receipt Date: 20230323
  Transmission Date: 20230417
  Serious: Yes (Hospitalization)
  Sender: FDA-Public Use
  Company Number: CN-BoehringerIngelheim-2023-BI-225122

PATIENT
  Age: 59 Year
  Sex: Female

DRUGS (6)
  1. ALTEPLASE [Suspect]
     Active Substance: ALTEPLASE
     Indication: Acute myocardial infarction
     Dosage: ADMINISTERED AT 03:30 (RT-PA 50 MG DISSOLVED IN 50 ML NS; 8 ML WAS STATICALLY PUSHED AND PUMPED AT A
     Route: 065
     Dates: start: 2020, end: 2020
  2. ASPIRIN [Concomitant]
     Active Substance: ASPIRIN
     Indication: Acute myocardial infarction
     Route: 048
  3. TICAGRELOR [Concomitant]
     Active Substance: TICAGRELOR
     Indication: Acute myocardial infarction
     Route: 048
  4. ATORVASTATIN [Concomitant]
     Active Substance: ATORVASTATIN
     Indication: Acute myocardial infarction
     Route: 048
  5. METOPROLOL [Concomitant]
     Active Substance: METOPROLOL
     Indication: Acute myocardial infarction
     Route: 048
  6. NITROGLYCERIN [Concomitant]
     Active Substance: NITROGLYCERIN
     Indication: Acute myocardial infarction
     Dosage: STRENGTH: 10 UG/MIN
     Route: 042

REACTIONS (3)
  - Aortic intramural haematoma [Unknown]
  - Arterial occlusive disease [Unknown]
  - Coronary artery dissection [Unknown]

NARRATIVE: CASE EVENT DATE: 20200101
